FAERS Safety Report 25375355 (Version 2)
Quarter: 2025Q2

REPORT INFORMATION
  Report Type: Spontaneous
  Country: US (occurrence: US)
  Receive Date: 20250529
  Receipt Date: 20250530
  Transmission Date: 20250717
  Serious: Yes (Hospitalization)
  Sender: PFIZER
  Company Number: US-PFIZER INC-202500110832

PATIENT
  Age: 66 Year
  Sex: Female

DRUGS (11)
  1. IBRANCE [Suspect]
     Active Substance: PALBOCICLIB
     Dates: start: 20220510
  2. IBRANCE [Suspect]
     Active Substance: PALBOCICLIB
     Dates: start: 20250218, end: 20250429
  3. IBRANCE [Suspect]
     Active Substance: PALBOCICLIB
     Dates: start: 20250508
  4. VRAYLAR [Concomitant]
     Active Substance: CARIPRAZINE
  5. LETROZOLE [Concomitant]
     Active Substance: LETROZOLE
  6. RECLAST [Concomitant]
     Active Substance: ZOLEDRONIC ACID
  7. CYMBALTA [Concomitant]
     Active Substance: DULOXETINE HYDROCHLORIDE
  8. GABAPENTIN [Concomitant]
     Active Substance: GABAPENTIN
  9. LITHIUM CARBONATE [Concomitant]
     Active Substance: LITHIUM CARBONATE
  10. PROBIOTIC [BIFIDOBACTERIUM BIFIDUM;BIFIDOBACTERIUM LACTIS;BIFIDOBACTER [Concomitant]
  11. IBUPROFEN [Concomitant]
     Active Substance: IBUPROFEN

REACTIONS (1)
  - Pneumonia [Unknown]
